FAERS Safety Report 6510033-7 (Version None)
Quarter: 2009Q4

REPORT INFORMATION
  Report Type: 
  Country: None (occurrence: None)
  Receive Date: 20091222
  Receipt Date: 20091217
  Transmission Date: 20100525
  Serious: Yes (Death, Other)
  Sender: FDA-Public Use
  Company Number: NL-ROCHE-675562

PATIENT
  Sex: Female

DRUGS (4)
  1. AVASTIN [Suspect]
     Dosage: THERAPY DISCONTINUED.
     Route: 065
     Dates: start: 20080101
  2. TARCEVA [Suspect]
     Route: 065
  3. GEMCITABINE [Suspect]
     Dosage: THERAPY DISCONTINUED.
     Route: 065
     Dates: start: 20080101
  4. CARBOPLATIN [Suspect]
     Dosage: THERAPY DISCONTINUED.
     Route: 065
     Dates: start: 20080101

REACTIONS (3)
  - BLINDNESS [None]
  - MALIGNANT NEOPLASM PROGRESSION [None]
  - METASTASES TO CENTRAL NERVOUS SYSTEM [None]
